FAERS Safety Report 5631359-5 (Version None)
Quarter: 2008Q1

REPORT INFORMATION
  Report Type: 
  Country: None (occurrence: None)
  Receive Date: 20080212
  Receipt Date: 20080128
  Transmission Date: 20080703
  Serious: Yes (Other)
  Sender: FDA-Public Use
  Company Number: DSA_30797_2007

PATIENT
  Sex: Female
  Weight: 105.2345 kg

DRUGS (7)
  1. VASOTEC [Suspect]
     Indication: HYPERTENSION
     Dosage: 2.5 MG QD ORAL
     Route: 048
     Dates: start: 20071002, end: 20071024
  2. VASOTEC [Suspect]
     Indication: HYPERTENSION
     Dosage: 10 MG QD ORAL; 2.5 MG QD CUT TABLET INTO FOURTHS ORAL
     Route: 048
     Dates: start: 19750101, end: 20050101
  3. VASOTEC [Suspect]
     Indication: HYPERTENSION
     Dosage: 10 MG QD ORAL; 2.5 MG QD CUT TABLET INTO FOURTHS ORAL
     Route: 048
     Dates: start: 20050101, end: 20071002
  4. BUMETANIDE [Concomitant]
  5. POTASSIUM CHLORIDE [Concomitant]
  6. METFORMIN HCL [Concomitant]
  7. ADVANCED BLOOD SUGAR [Concomitant]

REACTIONS (6)
  - AMNESIA [None]
  - BLOOD PRESSURE INCREASED [None]
  - CONDITION AGGRAVATED [None]
  - DIZZINESS [None]
  - PHARMACEUTICAL PRODUCT COMPLAINT [None]
  - TREMOR [None]
